FAERS Safety Report 11485595 (Version 2)
Quarter: 2015Q4

REPORT INFORMATION
  Report Type: Report from Study
  Country: US (occurrence: US)
  Receive Date: 20150909
  Receipt Date: 20151118
  Transmission Date: 20160304
  Serious: Yes (Other)
  Sender: FDA-Public Use
  Company Number: US-AMGEN-USASP2015091847

PATIENT
  Age: 62 Year
  Sex: Male

DRUGS (1)
  1. ENBREL [Suspect]
     Active Substance: ETANERCEPT
     Indication: RHEUMATOID ARTHRITIS
     Dosage: 50 MG, QWK
     Route: 065
     Dates: start: 201203

REACTIONS (9)
  - Feeling abnormal [Recovering/Resolving]
  - Pyrexia [Unknown]
  - Influenza [Unknown]
  - Rheumatoid arthritis [Unknown]
  - Scab [Unknown]
  - Surgery [Unknown]
  - Rhinorrhoea [Not Recovered/Not Resolved]
  - Malaise [Unknown]
  - Scratch [Unknown]

NARRATIVE: CASE EVENT DATE: 2015
